FAERS Safety Report 20344082 (Version 1)
Quarter: 2022Q1

REPORT INFORMATION
  Report Type: Spontaneous
  Country: US (occurrence: US)
  Receive Date: 20220118
  Receipt Date: 20220118
  Transmission Date: 20220424
  Serious: No
  Sender: FDA-Public Use
  Company Number: US-NOVARTISTESTPH-NVSC2022US008613

PATIENT
  Age: 58 Year
  Sex: Female
  Weight: 84.37 kg

DRUGS (2)
  1. XIIDRA [Suspect]
     Active Substance: LIFITEGRAST
     Indication: Dry eye
     Dosage: 2 DRP, Q12H (GTT)
     Route: 047
     Dates: start: 20220103
  2. XIIDRA [Suspect]
     Active Substance: LIFITEGRAST
     Indication: Visual impairment

REACTIONS (1)
  - Dizziness [Not Recovered/Not Resolved]

NARRATIVE: CASE EVENT DATE: 20220106
